FAERS Safety Report 23304794 (Version 2)
Quarter: 2024Q1

REPORT INFORMATION
  Report Type: Other
  Country: CA (occurrence: CA)
  Receive Date: 20231218
  Receipt Date: 20240229
  Transmission Date: 20240409
  Serious: Yes (Other)
  Sender: FDA-Public Use
  Company Number: CA-APOTEX-2023AP017772

PATIENT
  Sex: Male

DRUGS (6)
  1. ATORVASTATIN [Interacting]
     Active Substance: ATORVASTATIN
     Indication: Product used for unknown indication
     Dosage: 40 MILLIGRAM, QD
     Route: 065
  2. TAGRISSO [Interacting]
     Active Substance: OSIMERTINIB
     Indication: Non-small cell lung cancer
     Dosage: 80 MILLIGRAM, QD
     Route: 048
  3. APIXABAN [Concomitant]
     Active Substance: APIXABAN
     Indication: Product used for unknown indication
     Dosage: UNK
     Route: 065
  4. BECLOMETHASONE [Concomitant]
     Active Substance: BECLOMETHASONE
     Indication: Product used for unknown indication
     Dosage: 40 MILLIGRAM, QD
     Route: 065
  5. LORATADINE [Concomitant]
     Active Substance: LORATADINE
     Indication: Product used for unknown indication
     Dosage: 40 MILLIGRAM, QD
     Route: 065
  6. MEMANTINE [Concomitant]
     Active Substance: MEMANTINE
     Indication: Product used for unknown indication
     Dosage: UNK
     Route: 065

REACTIONS (11)
  - Agitation [Recovered/Resolved]
  - Delirium [Recovered/Resolved]
  - Drug interaction [Recovered/Resolved]
  - Thought blocking [Recovered/Resolved]
  - Frustration tolerance decreased [Recovered/Resolved]
  - Metastases to central nervous system [Recovered/Resolved]
  - Cerebral disorder [Recovered/Resolved]
  - Pulmonary thrombosis [Recovered/Resolved]
  - Thrombosis [Recovered/Resolved]
  - Cognitive disorder [Recovered/Resolved]
  - Fatigue [Recovered/Resolved]
